FAERS Safety Report 25284498 (Version 3)
Quarter: 2025Q2

REPORT INFORMATION
  Report Type: Spontaneous
  Country: BR (occurrence: BR)
  Receive Date: 20250508
  Receipt Date: 20250526
  Transmission Date: 20250717
  Serious: Yes (Other)
  Sender: ELI LILLY AND COMPANY
  Company Number: BR-ELI_LILLY_AND_COMPANY-BR202505004272

PATIENT
  Age: 58 Year
  Sex: Male

DRUGS (1)
  1. HUMALOG [Suspect]
     Active Substance: INSULIN LISPRO
     Indication: Type 1 diabetes mellitus
     Route: 065

REACTIONS (9)
  - Blood glucose increased [Unknown]
  - Hyperglycaemia [Unknown]
  - Loss of consciousness [Unknown]
  - Hypoglycaemia [Unknown]
  - Hypoglycaemia [Unknown]
  - Blood glucose increased [Unknown]
  - Product dose omission issue [Unknown]
  - Blood glucose decreased [Unknown]
  - Wrong technique in product usage process [Unknown]

NARRATIVE: CASE EVENT DATE: 20250325
